FAERS Safety Report 4980209-9 (Version None)
Quarter: 2006Q2

REPORT INFORMATION
  Report Type: 
  Country: None (occurrence: None)
  Receive Date: 20060418
  Receipt Date: 20060403
  Transmission Date: 20061013
  Serious: Yes (Hospitalization)
  Sender: FDA-Public Use
  Company Number: S06-FRA-01356-01

PATIENT
  Age: 13 Year
  Sex: Female

DRUGS (4)
  1. CITALOPRAM HYDROBROMIDE [Suspect]
     Dosage: 560 MG ONCE PO
     Route: 048
     Dates: start: 20050922, end: 20050922
  2. ZOLPIDEM TARTRATE [Suspect]
     Dosage: 280 MG ONCE PO
     Route: 048
     Dates: start: 20050922, end: 20050922
  3. XANAX [Suspect]
     Dosage: 100 MG ONCE PO
     Route: 048
     Dates: start: 20050922, end: 20050922
  4. NAPROXEN SODIUM [Suspect]
     Dosage: 16500 MG ONCE PO
     Route: 048
     Dates: start: 20050922, end: 20050922

REACTIONS (5)
  - HYPOTONIA [None]
  - MULTIPLE DRUG OVERDOSE [None]
  - MYDRIASIS [None]
  - SUICIDE ATTEMPT [None]
  - VOMITING [None]
